FAERS Safety Report 13735579 (Version 1)
Quarter: 2017Q3

REPORT INFORMATION
  Report Type: Spontaneous
  Country: US (occurrence: US)
  Receive Date: 20170709
  Receipt Date: 20170709
  Transmission Date: 20171127
  Serious: Yes (Other)
  Sender: FDA-Public Use
  Company Number: None

PATIENT
  Age: 59 Year
  Sex: Female
  Weight: 42.3 kg

DRUGS (1)
  1. FLUTICASONE PROPIONATE NASAL SPR [Suspect]
     Active Substance: FLUTICASONE PROPIONATE
     Indication: SINUS DISORDER
     Dosage: ?          OTHER STRENGTH:UGM;QUANTITY:4 SPRAY(S);?
     Route: 055
     Dates: start: 20170706, end: 20170709

REACTIONS (6)
  - Irritability [None]
  - Palpitations [None]
  - Nasal discomfort [None]
  - Anxiety [None]
  - Feeling abnormal [None]
  - Mood altered [None]

NARRATIVE: CASE EVENT DATE: 20170709
